FAERS Safety Report 4876299-4 (Version None)
Quarter: 2006Q1

REPORT INFORMATION
  Report Type: 
  Country: None (occurrence: None)
  Receive Date: 20060106
  Receipt Date: 20051228
  Transmission Date: 20060701
  Serious: Yes (Hospitalization)
  Sender: FDA-Public Use
  Company Number: 2005BI017376

PATIENT
  Age: 50 Year
  Sex: Female

DRUGS (5)
  1. AVONEX [Suspect]
     Indication: MULTIPLE SCLEROSIS
     Dosage: 30 UG;QW;IM
     Route: 030
     Dates: start: 20020101, end: 20050401
  2. OXYCONTIN [Concomitant]
  3. INDERAL [Concomitant]
  4. PROZAC [Concomitant]
  5. AMBIEN [Concomitant]

REACTIONS (2)
  - DERMOID CYST OF OVARY [None]
  - DRUG DOSE OMISSION [None]
